FAERS Safety Report 5662299-3 (Version None)
Quarter: 2008Q1

REPORT INFORMATION
  Report Type: 
  Country: None (occurrence: None)
  Receive Date: 20080312
  Receipt Date: 20080229
  Transmission Date: 20080703
  Serious: Yes (Other)
  Sender: FDA-Public Use
  Company Number: JP-PFIZER INC-2008018153

PATIENT
  Age: 75 Year
  Sex: Male

DRUGS (6)
  1. MEDROL [Suspect]
     Dosage: DAILY DOSE:2MG
     Route: 048
  2. AMIODARONE HCL [Concomitant]
  3. VALSARTAN [Concomitant]
  4. URIEF [Concomitant]
  5. PEON [Concomitant]
  6. GLORIAMIN [Concomitant]

REACTIONS (1)
  - INTERSTITIAL LUNG DISEASE [None]
